FAERS Safety Report 23535584 (Version 1)
Quarter: 2024Q1

REPORT INFORMATION
  Report Type: Spontaneous
  Country: US (occurrence: US)
  Receive Date: 20240218
  Receipt Date: 20240218
  Transmission Date: 20240409
  Serious: No
  Sender: FDA-Public Use
  Company Number: US-AMGEN-USASP2024029066

PATIENT
  Age: 68 Year
  Sex: Male

DRUGS (2)
  1. RITUXIMAB [Suspect]
     Active Substance: RITUXIMAB
     Indication: Ocular lymphoma
     Dosage: UNK UNK, QMO, 9 CYCLES (IN RIGHT EYE)
  2. METHOTREXATE [Concomitant]
     Active Substance: METHOTREXATE
     Indication: Ocular lymphoma
     Dosage: UNK, 9 CYCLES

REACTIONS (3)
  - Therapy non-responder [Unknown]
  - Gene mutation identification test positive [Recovered/Resolved]
  - Incorrect route of product administration [Unknown]
